FAERS Safety Report 7807200-9 (Version None)
Quarter: 2011Q4

REPORT INFORMATION
  Report Type: 
  Country: None (occurrence: None)
  Receive Date: 20111011
  Receipt Date: 20111007
  Transmission Date: 20120403
  Serious: Yes (Death, Other)
  Sender: FDA-Public Use
  Company Number: PHHY2011US65691

PATIENT
  Sex: Male

DRUGS (6)
  1. GEMZAR [Concomitant]
     Indication: PANCREATIC CARCINOMA
     Dosage: 1000 MG EVERY 3/4 WEEKS
     Route: 042
     Dates: start: 20101110, end: 20110518
  2. ZOFRAN [Concomitant]
     Indication: NAUSEA
  3. ZOMETA [Suspect]
     Indication: HYPERCALCAEMIA
     Route: 042
     Dates: start: 20101207
  4. PROCAL [Concomitant]
  5. TARCEVA [Concomitant]
     Indication: PANCREATIC CARCINOMA
     Dates: start: 20110316, end: 20110518
  6. XELODA [Concomitant]
     Route: 048
     Dates: start: 20110518

REACTIONS (7)
  - NEOPLASM MALIGNANT [None]
  - NAUSEA [None]
  - VOMITING [None]
  - NEOPLASM PROGRESSION [None]
  - LOSS OF CONSCIOUSNESS [None]
  - CONFUSIONAL STATE [None]
  - SINUS TACHYCARDIA [None]
